FAERS Safety Report 18433845 (Version 7)
Quarter: 2021Q4

REPORT INFORMATION
  Report Type: Spontaneous
  Country: US (occurrence: US)
  Receive Date: 20201027
  Receipt Date: 20211110
  Transmission Date: 20220303
  Serious: Yes (Life-Threatening, Hospitalization, Disabling, Other)
  Sender: FDA-Public Use
  Company Number: US-PFIZER INC-2020300683

PATIENT
  Age: 61 Year
  Sex: Male
  Weight: 97.959 kg

DRUGS (3)
  1. LYRICA [Suspect]
     Active Substance: PREGABALIN
     Indication: Pain
     Dosage: 500 MG, DAILY (2 TABS IN AM, 1 TAB 12:00, 2 TABS IN PM)
  2. LYRICA [Suspect]
     Active Substance: PREGABALIN
     Indication: Fibromyalgia
  3. LYRICA [Suspect]
     Active Substance: PREGABALIN
     Indication: Back disorder

REACTIONS (5)
  - COVID-19 [Unknown]
  - Lower respiratory tract infection viral [Unknown]
  - Arthropathy [Unknown]
  - Dysphagia [Unknown]
  - Confusional state [Unknown]
